FAERS Safety Report 13619895 (Version 1)
Quarter: 2017Q2

REPORT INFORMATION
  Report Type: Report from Study
  Country: US (occurrence: US)
  Receive Date: 20170606
  Receipt Date: 20170606
  Transmission Date: 20170830
  Serious: No
  Sender: FDA-Public Use
  Company Number: GXBR2017US001593

PATIENT
  Age: 13 Year
  Sex: Male
  Weight: 45.7 kg

DRUGS (6)
  1. CELEXA [Concomitant]
     Active Substance: CITALOPRAM HYDROBROMIDE
  2. METHYLPHENIDATE. [Concomitant]
     Active Substance: METHYLPHENIDATE
     Dosage: UNK DF, UNK
  3. OMNITROPE [Suspect]
     Active Substance: SOMATROPIN
     Indication: GROWTH RETARDATION
     Dosage: 1.6 MG, QD
     Route: 058
     Dates: start: 201510
  4. MELATONIN [Concomitant]
     Active Substance: MELATONIN
     Dosage: UNK DF, UNK
  5. CALCIUM [Concomitant]
     Active Substance: CALCIUM
     Dosage: UNK DF, UNK
  6. ARIMIDEX [Suspect]
     Active Substance: ANASTROZOLE
     Indication: PRODUCT USED FOR UNKNOWN INDICATION
     Dosage: 1 MG, QD
     Route: 065

REACTIONS (6)
  - Increased appetite [Unknown]
  - Insulin-like growth factor increased [Unknown]
  - Weight increased [Unknown]
  - Epiphyses premature fusion [Unknown]
  - Blood glucose increased [Unknown]
  - Precocious puberty [Unknown]

NARRATIVE: CASE EVENT DATE: 201703
